FAERS Safety Report 7092334-X (Version None)
Quarter: 2010Q4

REPORT INFORMATION
  Report Type: 
  Country: None (occurrence: None)
  Receive Date: 20101109
  Receipt Date: 20101027
  Transmission Date: 20110411
  Serious: Yes (Other)
  Sender: FDA-Public Use
  Company Number: GB-MYLANLABS-2010S1018214

PATIENT
  Age: 34 Year
  Sex: Male
  Weight: 78 kg

DRUGS (5)
  1. FUROSEMIDE [Suspect]
     Indication: NEPHROTIC SYNDROME
     Route: 048
  2. IRBESARTAN [Concomitant]
     Indication: PROTEINURIA
  3. MYCOPHENOLATE MOFETIL [Concomitant]
     Indication: GLOMERULONEPHRITIS MEMBRANOUS
  4. OMEPRAZOLE [Concomitant]
     Indication: GASTRITIS
  5. PREDNISOLONE [Concomitant]
     Indication: GLOMERULONEPHRITIS MEMBRANOUS

REACTIONS (3)
  - DRY THROAT [None]
  - DYSPNOEA [None]
  - NASAL CONGESTION [None]
